FAERS Safety Report 5894161-5 (Version None)
Quarter: 2008Q3

REPORT INFORMATION
  Report Type: 
  Country: None (occurrence: None)
  Receive Date: 20080923
  Receipt Date: 20080211
  Transmission Date: 20090109
  Serious: No
  Sender: FDA-Public Use
  Company Number: US-ASTRAZENECA-2008UW02898

PATIENT
  Age: 19 Year
  Sex: Female

DRUGS (6)
  1. SEROQUEL [Suspect]
     Route: 048
     Dates: start: 20020101
  2. SEROQUEL [Suspect]
     Route: 048
     Dates: start: 20020101
  3. SYNTHROID [Suspect]
  4. LUVOX [Concomitant]
  5. BENZTROPINE MESYLATE [Concomitant]
  6. LAMICTAL [Concomitant]

REACTIONS (4)
  - FATIGUE [None]
  - HYPOTHYROIDISM [None]
  - MUSCULAR WEAKNESS [None]
  - MUSCULOSKELETAL PAIN [None]
